FAERS Safety Report 25555099 (Version 2)
Quarter: 2025Q3

REPORT INFORMATION
  Report Type: Spontaneous
  Country: CA (occurrence: CA)
  Receive Date: 20250715
  Receipt Date: 20250913
  Transmission Date: 20251020
  Serious: Yes (Other)
  Sender: CELLTRION
  Company Number: CA-PFIZER INC-202500139028

PATIENT

DRUGS (1)
  1. INFLECTRA [Suspect]
     Active Substance: INFLIXIMAB-DYYB
     Indication: Colitis ulcerative
     Dates: start: 20220203

REACTIONS (3)
  - Melaena [Unknown]
  - Duodenal ulcer [Unknown]
  - Duodenitis [Unknown]

NARRATIVE: CASE EVENT DATE: 20230101
